FAERS Safety Report 26017503 (Version 1)
Quarter: 2025Q4

REPORT INFORMATION
  Report Type: Spontaneous
  Country: US (occurrence: US)
  Receive Date: 20251110
  Receipt Date: 20251110
  Transmission Date: 20260118
  Serious: Yes (Hospitalization)
  Sender: ACCORD
  Company Number: US-Accord-511800

PATIENT
  Age: 15 Year
  Sex: Male

DRUGS (5)
  1. MYCOPHENOLATE MOFETIL [Suspect]
     Active Substance: MYCOPHENOLATE MOFETIL
     Indication: Immunosuppressant drug therapy
     Dosage: 3 TABLETS (540 MG) ORALLY EVERY MORNING
     Route: 048
     Dates: start: 2021
  2. THYMOCYTE IMMUNE GLOBULIN NOS [Suspect]
     Active Substance: THYMOCYTE IMMUNE GLOBULIN NOS
     Indication: Immunosuppressant drug therapy
     Dosage: 6 MG/KG OF THYMOGLOBULIN IV FOR FOUR DOSES
     Route: 042
     Dates: start: 2021
  3. NIFEDIPINE [Suspect]
     Active Substance: NIFEDIPINE
     Indication: Hypertension
     Dates: start: 202206, end: 202403
  4. PREDNISONE [Suspect]
     Active Substance: PREDNISONE
     Indication: Immunosuppressant drug therapy
     Dates: start: 2021
  5. TACROLIMUS [Concomitant]
     Active Substance: TACROLIMUS
     Indication: Immunosuppressant drug therapy
     Dates: start: 2021

REACTIONS (4)
  - Gingival hypertrophy [Recovered/Resolved]
  - Tonsillar hypertrophy [Recovered/Resolved]
  - Weight decreased [Recovered/Resolved]
  - Sleep-related breathing disorder [Unknown]

NARRATIVE: CASE EVENT DATE: 20230101
